FAERS Safety Report 16928260 (Version 1)
Quarter: 2019Q4

REPORT INFORMATION
  Report Type: Spontaneous
  Country: CA (occurrence: CA)
  Receive Date: 20191017
  Receipt Date: 20191017
  Transmission Date: 20200122
  Serious: Yes (Other)
  Sender: FDA-Public Use
  Company Number: CA-TEVA-2019-CA-1123182

PATIENT
  Sex: Female

DRUGS (1)
  1. ZOLEDRONIC ACID [Suspect]
     Active Substance: ZOLEDRONIC ACID
     Indication: PRODUCT USED FOR UNKNOWN INDICATION
     Route: 051

REACTIONS (12)
  - Hypoaesthesia [Recovering/Resolving]
  - Influenza like illness [Recovering/Resolving]
  - Affect lability [Recovering/Resolving]
  - Bone pain [Recovering/Resolving]
  - Abdominal pain upper [Recovering/Resolving]
  - Diarrhoea [Recovering/Resolving]
  - Eye pain [Recovering/Resolving]
  - Pain in jaw [Recovering/Resolving]
  - Arthritis [Recovering/Resolving]
  - Dysentery [Recovering/Resolving]
  - Ear pain [Recovering/Resolving]
  - Feeling abnormal [Recovering/Resolving]
